FAERS Safety Report 4599059-0 (Version None)
Quarter: 2005Q1

REPORT INFORMATION
  Report Type: 
  Country: None (occurrence: None)
  Receive Date: 20050304
  Receipt Date: 20050228
  Transmission Date: 20050727
  Serious: Yes (Death, Hospitalization)
  Sender: FDA-Public Use
  Company Number: US-MERCK-0502USA03576

PATIENT
  Age: 72 Year
  Sex: Male

DRUGS (3)
  1. VIOXX [Suspect]
     Indication: PAIN MANAGEMENT
     Route: 048
     Dates: start: 20030101
  2. VICODIN [Concomitant]
     Route: 065
  3. GLIPIZIDE [Concomitant]
     Route: 065

REACTIONS (3)
  - DIABETIC COMPLICATION [None]
  - HEAD INJURY [None]
  - SYNCOPE [None]
